FAERS Safety Report 4296529-X (Version None)
Quarter: 2004Q1

REPORT INFORMATION
  Report Type: 
  Country: None (occurrence: None)
  Receive Date: 20040126
  Receipt Date: 20031029
  Transmission Date: 20041129
  Serious: No
  Sender: FDA-Public Use
  Company Number: USA030844421

PATIENT
  Age: 47 Year
  Sex: Male
  Weight: 82 kg

DRUGS (4)
  1. STRATTERA [Suspect]
     Indication: ATTENTION DEFICIT/HYPERACTIVITY DISORDER
     Dosage: 80 MG/DAY
     Dates: start: 20030507
  2. CLONIDINE [Concomitant]
  3. WELLBUTRIN SR [Concomitant]
  4. BUSPAR [Concomitant]

REACTIONS (6)
  - ABDOMINAL PAIN UPPER [None]
  - BACK PAIN [None]
  - BLADDER PAIN [None]
  - MALE SEXUAL DYSFUNCTION [None]
  - TESTICULAR PAIN [None]
  - TESTICULAR SWELLING [None]
